FAERS Safety Report 23779452 (Version 4)
Quarter: 2025Q1

REPORT INFORMATION
  Report Type: Spontaneous
  Country: US (occurrence: US)
  Receive Date: 20240424
  Receipt Date: 20250318
  Transmission Date: 20250409
  Serious: Yes (Other)
  Sender: SANOFI AVENTIS
  Company Number: US-SANOFI-02017896

PATIENT
  Age: 51 Year
  Sex: Female

DRUGS (1)
  1. LANTUS SOLOSTAR [Suspect]
     Active Substance: INSULIN GLARGINE
     Indication: Type 1 diabetes mellitus
     Dosage: 50 U, QD
     Route: 065

REACTIONS (6)
  - Diabetes mellitus inadequate control [Unknown]
  - Drug ineffective [Unknown]
  - Peripheral swelling [Unknown]
  - Limb injury [Unknown]
  - Product storage error [Unknown]
  - Incorrect dose administered [Unknown]
